FAERS Safety Report 5006406-4 (Version None)
Quarter: 2006Q2

REPORT INFORMATION
  Report Type: 
  Country: None (occurrence: None)
  Receive Date: 20060519
  Receipt Date: 20060509
  Transmission Date: 20061013
  Serious: Yes (Death)
  Sender: FDA-Public Use
  Company Number: JP-SANOFI-SYNTHELABO-A01200603716

PATIENT
  Age: 76 Year
  Sex: Male

DRUGS (3)
  1. OXALIPLATIN [Suspect]
     Dosage: UNK
     Route: 042
     Dates: start: 20060325, end: 20060325
  2. FLUOROURACIL [Suspect]
     Dosage: UNK
     Route: 042
     Dates: start: 20060325, end: 20060326
  3. CALCIUM LEVOFOLINATE [Suspect]
     Dosage: UNK
     Route: 042
     Dates: start: 20060325, end: 20060326

REACTIONS (1)
  - INTERSTITIAL LUNG DISEASE [None]
